FAERS Safety Report 8802702 (Version 4)
Quarter: 2012Q4

REPORT INFORMATION
  Report Type: 
  Country: US (occurrence: US)
  Receive Date: 20120921
  Receipt Date: 20121025
  Transmission Date: 20130627
  Serious: Yes (Hospitalization)
  Sender: FDA-Public Use
  Company Number: US-GILEAD-2012-0061481

PATIENT
  Sex: Female

DRUGS (3)
  1. LETAIRIS [Suspect]
     Indication: PULMONARY ARTERIAL HYPERTENSION
     Dosage: 10 mg, UNK
     Route: 048
     Dates: start: 20111028
  2. COUMADIN                           /00014802/ [Suspect]
  3. TYVASO [Suspect]

REACTIONS (8)
  - Haemorrhage [Unknown]
  - Erythema [Unknown]
  - Oedema peripheral [Unknown]
  - Haemoglobin decreased [Unknown]
  - Transfusion [Unknown]
  - Fluid retention [Unknown]
  - Haemorrhage [Unknown]
  - Dry mouth [Unknown]
